FAERS Safety Report 7554130-6 (Version None)
Quarter: 2011Q2

REPORT INFORMATION
  Report Type: 
  Country: None (occurrence: None)
  Receive Date: 20110614
  Receipt Date: 20110614
  Transmission Date: 20111010
  Serious: Yes (Hospitalization)
  Sender: FDA-Public Use
  Company Number: None

PATIENT
  Age: 26 Year
  Sex: Male
  Weight: 70 kg

DRUGS (3)
  1. KCL IN NORMAL SALINE [Concomitant]
  2. MESALAMINE [Suspect]
     Indication: COLITIS ULCERATIVE
     Dosage: 4 GRAM TWICE A DAY RECTAL
     Route: 054
     Dates: start: 20040104, end: 20110611
  3. ZOFRAN [Concomitant]

REACTIONS (5)
  - COUGH [None]
  - VOMITING [None]
  - WEIGHT DECREASED [None]
  - DIARRHOEA [None]
  - DIARRHOEA HAEMORRHAGIC [None]
